FAERS Safety Report 6437312-6 (Version None)
Quarter: 2009Q4

REPORT INFORMATION
  Report Type: 
  Country: None (occurrence: None)
  Receive Date: 20091110
  Receipt Date: 20071005
  Transmission Date: 20100525
  Serious: No
  Sender: FDA-Public Use
  Company Number: AECAN200700233

PATIENT
  Age: 65 Year
  Sex: Female

DRUGS (2)
  1. GAMUNEX [Suspect]
     Indication: IDIOPATHIC THROMBOCYTOPENIC PURPURA
     Dosage: Q2W
     Route: 042
  2. WINRHO [Suspect]
     Indication: IDIOPATHIC THROMBOCYTOPENIC PURPURA

REACTIONS (7)
  - ASTHENIA [None]
  - FATIGUE [None]
  - FLUID INTAKE REDUCED [None]
  - HEADACHE [None]
  - HYPERSOMNIA [None]
  - HYPOPHAGIA [None]
  - NAUSEA [None]
